FAERS Safety Report 7223406-4 (Version None)
Quarter: 2011Q1

REPORT INFORMATION
  Report Type: 
  Country: None (occurrence: None)
  Receive Date: 20110112
  Receipt Date: 20100602
  Transmission Date: 20110831
  Serious: No
  Sender: FDA-Public Use
  Company Number: US-ALLERGAN-1007175US

PATIENT
  Sex: Female

DRUGS (3)
  1. GENTEAL [Concomitant]
  2. RESTASIS [Suspect]
     Indication: DRY EYE
     Dosage: UNK
     Route: 047
  3. THYROID TAB [Concomitant]

REACTIONS (2)
  - LACRIMATION INCREASED [None]
  - FOREIGN BODY SENSATION IN EYES [None]
